FAERS Safety Report 4902510-7 (Version None)
Quarter: 2006Q1

REPORT INFORMATION
  Report Type: 
  Country: None (occurrence: None)
  Receive Date: 20060207
  Receipt Date: 20050722
  Transmission Date: 20060701
  Serious: Yes (Death, Hospitalization)
  Sender: FDA-Public Use
  Company Number: US-MERCK-0507USA03854

PATIENT
  Age: 59 Year
  Sex: Male
  Weight: 98 kg

DRUGS (1)
  1. VIOXX [Suspect]
     Indication: ARTHRALGIA
     Route: 048
     Dates: start: 20020125, end: 20020903

REACTIONS (2)
  - ANGIOPATHY [None]
  - MYOCARDIAL INFARCTION [None]
